FAERS Safety Report 4323270-7 (Version None)
Quarter: 2004Q1

REPORT INFORMATION
  Report Type: 
  Country: None (occurrence: None)
  Receive Date: 20040324
  Receipt Date: 20040324
  Transmission Date: 20041129
  Serious: Yes (Life-Threatening, Hospitalization)
  Sender: FDA-Public Use
  Company Number: None

PATIENT
  Age: 37 Year
  Weight: 65.7716 kg

DRUGS (2)
  1. WELLBUTRIN [Suspect]
     Indication: EX-SMOKER
     Dosage: 20 MG 1 DAILY ORAL
     Route: 048
  2. CELEXA [Suspect]

REACTIONS (2)
  - HYPERTENSION [None]
  - SUICIDAL IDEATION [None]
